FAERS Safety Report 7679266 (Version 4)
Quarter: 2013Q3

REPORT INFORMATION
  Report Type: Spontaneous
  Country: US (occurrence: US)
  Receive Date: 20101122
  Receipt Date: 20130917
  Transmission Date: 20140515
  Serious: Yes (Hospitalization)
  Sender: FDA-Public Use
  Company Number: US-US-EMD SERONO, INC.-7006674

PATIENT
  Age: 42 Year
  Sex: Male

DRUGS (1)
  1. REBIF [Suspect]
     Indication: MULTIPLE SCLEROSIS
     Route: 058
     Dates: start: 20090218

REACTIONS (5)
  - Influenza [Recovering/Resolving]
  - Convulsion [Recovering/Resolving]
  - Fall [Unknown]
  - Laceration [Unknown]
  - Pain [Not Recovered/Not Resolved]
